FAERS Safety Report 9768403 (Version 2)
Quarter: 2013Q4

REPORT INFORMATION
  Report Type: Spontaneous
  Country: US (occurrence: US)
  Receive Date: 20131217
  Receipt Date: 20131219
  Transmission Date: 20140711
  Serious: Yes (Other)
  Sender: FDA-Public Use
  Company Number: ALCN2013US006251

PATIENT
  Sex: Female

DRUGS (4)
  1. TIMOLOL [Suspect]
     Indication: GLAUCOMA
     Route: 047
  2. LATANOPROST [Concomitant]
     Indication: GLAUCOMA
     Route: 047
  3. BRIMONIDINE [Concomitant]
     Indication: GLAUCOMA
     Route: 047
  4. ANTIINFLAMMATORY AGENTS [Concomitant]

REACTIONS (3)
  - Eye haemorrhage [Unknown]
  - Hypertension [Recovered/Resolved]
  - Drug ineffective [Unknown]
